FAERS Safety Report 17597905 (Version 1)
Quarter: 2020Q1

REPORT INFORMATION
  Report Type: Spontaneous
  Country: US (occurrence: US)
  Receive Date: 20200330
  Receipt Date: 20200330
  Transmission Date: 20200409
  Serious: Yes (Life-Threatening, Other)
  Sender: FDA-Public Use
  Company Number: US-AMGEN-USASP2020049253

PATIENT

DRUGS (1)
  1. PANITUMUMAB [Suspect]
     Active Substance: PANITUMUMAB
     Indication: COLORECTAL CANCER METASTATIC
     Dosage: 6 MILLIGRAM/KILOGRAM, Q2WK
     Route: 065

REACTIONS (5)
  - Infusion related reaction [Unknown]
  - Therapy partial responder [Unknown]
  - Hypomagnesaemia [Unknown]
  - Skin toxicity [Unknown]
  - Hypersensitivity [Unknown]
